FAERS Safety Report 23281792 (Version 2)
Quarter: 2024Q1

REPORT INFORMATION
  Report Type: Report from Study
  Country: US (occurrence: US)
  Receive Date: 20231211
  Receipt Date: 20240129
  Transmission Date: 20240409
  Serious: Yes (Other)
  Sender: FDA-Public Use
  Company Number: US-ABBVIE-5527073

PATIENT
  Sex: Female

DRUGS (5)
  1. SKYRIZI [Suspect]
     Active Substance: RISANKIZUMAB-RZAA
     Indication: Crohn^s disease
     Dosage: 360 MG; SKYRIZI CARTRIDGE;STRENGTH:360MG/2.4M, WEEK 12, FORM STRENGTH: 360 MG
     Route: 058
     Dates: start: 20230817, end: 20230817
  2. SKYRIZI [Suspect]
     Active Substance: RISANKIZUMAB-RZAA
     Dosage: 360 MG; SKYRIZI CARTRIDGE;STRENGTH:360MG/2.4M, FORM STRENGTH: 360 MG
     Route: 058
     Dates: start: 20231012, end: 20231012
  3. SKYRIZI [Suspect]
     Active Substance: RISANKIZUMAB-RZAA
     Indication: Crohn^s disease
     Dosage: WEEK 0, FORM STRENGTH: 600 MG
     Route: 042
     Dates: start: 20230519, end: 20230519
  4. SKYRIZI [Suspect]
     Active Substance: RISANKIZUMAB-RZAA
     Indication: Crohn^s disease
     Dosage: WEEK 4, FORM STRENGTH: 600 MG
     Route: 042
     Dates: start: 20230616, end: 20230616
  5. SKYRIZI [Suspect]
     Active Substance: RISANKIZUMAB-RZAA
     Indication: Crohn^s disease
     Dosage: WEEK 8, FORM STRENGTH: 600 MG
     Route: 042
     Dates: start: 20230714, end: 20230714

REACTIONS (3)
  - Catheter placement [Unknown]
  - Drug ineffective [Unknown]
  - Urinary tract infection [Not Recovered/Not Resolved]

NARRATIVE: CASE EVENT DATE: 20230101
